FAERS Safety Report 12733420 (Version 1)
Quarter: 2016Q3

REPORT INFORMATION
  Report Type: Report from Study
  Country: IT (occurrence: IT)
  Receive Date: 20160912
  Receipt Date: 20160912
  Transmission Date: 20161109
  Serious: Yes (Other)
  Sender: FDA-Public Use
  Company Number: IT-GILEAD-2016-0231740

PATIENT
  Age: 56 Year
  Sex: Male
  Weight: 75 kg

DRUGS (5)
  1. RALTEGRAVIR. [Concomitant]
     Active Substance: RALTEGRAVIR
  2. ALLOPURINOL. [Concomitant]
     Active Substance: ALLOPURINOL
     Indication: HYPERURICAEMIA
  3. FACTOR VIII [Concomitant]
     Active Substance: ANTIHEMOPHILIC FACTOR HUMAN
     Indication: HAEMOPHILIA
  4. TRUVADA [Suspect]
     Active Substance: EMTRICITABINE\TENOFOVIR DISOPROXIL FUMARATE
     Indication: HIV INFECTION
     Dosage: 1 UNK, UNK
     Route: 065
     Dates: start: 20150527
  5. CHOLECALCIFEROL [Concomitant]
     Active Substance: CHOLECALCIFEROL
     Indication: VITAMIN D DEFICIENCY

REACTIONS (1)
  - Osteoporosis [Unknown]
